FAERS Safety Report 11807157 (Version 1)
Quarter: 2015Q4

REPORT INFORMATION
  Report Type: Spontaneous
  Country: US (occurrence: US)
  Receive Date: 20151207
  Receipt Date: 20151207
  Transmission Date: 20160305
  Serious: No
  Sender: FDA-Public Use
  Company Number: US-MYLANLABS-2015M1031028

PATIENT
  Sex: Male

DRUGS (2)
  1. CAPECITABINE TABLETS USP [Suspect]
     Active Substance: CAPECITABINE
     Indication: NEOPLASM MALIGNANT
     Dosage: 1000 MG, Q12H
     Route: 048
     Dates: start: 20150908
  2. CAPECITABINE TABLETS USP [Suspect]
     Active Substance: CAPECITABINE
     Indication: OFF LABEL USE

REACTIONS (1)
  - Blood glucose decreased [Not Recovered/Not Resolved]

NARRATIVE: CASE EVENT DATE: 20150908
